FAERS Safety Report 5823313-5 (Version None)
Quarter: 2008Q3

REPORT INFORMATION
  Report Type: 
  Country: None (occurrence: None)
  Receive Date: 20080725
  Receipt Date: 20070603
  Transmission Date: 20090109
  Serious: No
  Sender: FDA-Public Use
  Company Number: US-AMGEN-KDL227706

PATIENT
  Age: 37 Year
  Sex: Female

DRUGS (6)
  1. PROCRIT [Suspect]
     Indication: ANAEMIA OF MALIGNANT DISEASE
  2. ATIVAN [Concomitant]
  3. DARVON [Concomitant]
  4. MULTI-VITAMINS [Concomitant]
  5. BENADRYL [Concomitant]
  6. NAVELBINE [Concomitant]

REACTIONS (2)
  - DRUG INEFFECTIVE [None]
  - PLATELET COUNT DECREASED [None]
